FAERS Safety Report 8597800-3 (Version None)
Quarter: 2012Q3

REPORT INFORMATION
  Report Type: 
  Country: None (occurrence: None)
  Receive Date: 20120802
  Receipt Date: 20120723
  Transmission Date: 20120928
  Serious: Yes (Death, Other)
  Sender: FDA-Public Use
  Company Number: 2012P1052087

PATIENT

DRUGS (8)
  1. MEPROBAMATE [Suspect]
  2. DIPHENHYDRAMINE HCL [Suspect]
  3. ALPRAZOLAM [Suspect]
  4. CARISOPRODOL [Suspect]
  5. NORDIAZEPAM (NO PREF. NAME) [Suspect]
  6. SERTRALINE HYDROCHLORIDE [Suspect]
  7. ACETAMINOPHEN [Suspect]
  8. OXYCONTIN [Suspect]

REACTIONS (3)
  - DEPRESSION [None]
  - TOXICITY TO VARIOUS AGENTS [None]
  - ACCIDENTAL DEATH [None]
